FAERS Safety Report 21395301 (Version 1)
Quarter: 2022Q3

REPORT INFORMATION
  Report Type: Spontaneous
  Country: US (occurrence: None)
  Receive Date: 20220929
  Receipt Date: 20220929
  Transmission Date: 20221027
  Serious: Yes (Other)
  Sender: FDA-Public Use
  Company Number: None

PATIENT
  Sex: Female

DRUGS (1)
  1. HYLENEX RECOMBINANT [Suspect]
     Active Substance: HYALURONIDASE (HUMAN RECOMBINANT)

REACTIONS (9)
  - Incorrect dose administered [None]
  - Wrong technique in product usage process [None]
  - Hypersensitivity [None]
  - Lip injury [None]
  - Iatrogenic injury [None]
  - Skin hypertrophy [None]
  - Scar [None]
  - Injection site injury [None]
  - Skin injury [None]

NARRATIVE: CASE EVENT DATE: 20220512
